FAERS Safety Report 15564794 (Version 10)
Quarter: 2019Q4

REPORT INFORMATION
  Report Type: Spontaneous
  Country: US (occurrence: US)
  Receive Date: 20181030
  Receipt Date: 20191210
  Transmission Date: 20200122
  Serious: Yes (Other)
  Sender: FDA-Public Use
  Company Number: US-PFIZER INC-2018438185

PATIENT
  Age: 69 Year
  Sex: Female
  Weight: 115 kg

DRUGS (6)
  1. LOSARTAN. [Concomitant]
     Active Substance: LOSARTAN
     Indication: BONE CANCER
     Dosage: 50 MG, 1X/DAY
     Route: 048
     Dates: start: 2016
  2. IBRANCE [Suspect]
     Active Substance: PALBOCICLIB
     Dosage: 125 MG, CYCLIC (21 OF THEM AND THEN I AM OFF FOR A WEEK AND THEN I START 21 DAYS AGAIN)
     Route: 048
  3. IBRANCE [Suspect]
     Active Substance: PALBOCICLIB
     Indication: BREAST CANCER METASTATIC
     Dosage: 125 MG, CYCLIC (FOR 21 DAYS AND THEN OFF FOR 7 DAYS)
     Route: 048
     Dates: start: 2016
  4. SERTRALINE [Concomitant]
     Active Substance: SERTRALINE HYDROCHLORIDE
     Dosage: 25 MG, 1X/DAY
  5. XGEVA [Concomitant]
     Active Substance: DENOSUMAB
     Indication: BONE LOSS
     Dosage: ONE INJECTION EVERY THREE MONTHS
     Dates: start: 2016
  6. HYDROCODONE/ACETAMINOPHEN [Concomitant]
     Active Substance: ACETAMINOPHEN\HYDROCODONE
     Indication: PAIN
     Dosage: 10-325 AS NEEDED (EVERY 8 HOURS)

REACTIONS (21)
  - Oral herpes [Not Recovered/Not Resolved]
  - Fatigue [Unknown]
  - Cataract [Unknown]
  - Kidney infection [Unknown]
  - Retinal haemorrhage [Unknown]
  - Oral pain [Unknown]
  - Body height decreased [Unknown]
  - Aphthous ulcer [Not Recovered/Not Resolved]
  - Pain [Unknown]
  - Movement disorder [Not Recovered/Not Resolved]
  - Gait disturbance [Not Recovered/Not Resolved]
  - Nasopharyngitis [Unknown]
  - Neoplasm progression [Unknown]
  - Hypokinesia [Unknown]
  - Decreased immune responsiveness [Unknown]
  - Hypersomnia [Unknown]
  - Flatulence [Not Recovered/Not Resolved]
  - Weight increased [Unknown]
  - Gout [Not Recovered/Not Resolved]
  - Headache [Not Recovered/Not Resolved]
  - White blood cell count decreased [Unknown]
